FAERS Safety Report 7834231-5 (Version None)
Quarter: 2011Q4

REPORT INFORMATION
  Report Type: 
  Country: None (occurrence: None)
  Receive Date: 20111024
  Receipt Date: 20111017
  Transmission Date: 20120403
  Serious: Yes (Disabling, Other)
  Sender: FDA-Public Use
  Company Number: PHHY2011CA85308

PATIENT
  Sex: Female

DRUGS (20)
  1. PREVACID [Concomitant]
     Dosage: 30 MG, QD
  2. SLOW-K [Concomitant]
     Dosage: 600 MG, TID
  3. ASACOL [Concomitant]
     Dosage: 800 MG, TID
  4. ENTOCORT EC [Concomitant]
     Dosage: 6 MG, UNK
  5. PREDNISONE [Concomitant]
     Dosage: 10 MG, QD
  6. WELLBUTRIN [Concomitant]
     Dosage: 150 MG, BID
  7. NITRAZEPAM [Concomitant]
     Dosage: 10 MG, UNK
  8. SYNTHROID [Concomitant]
     Dosage: 150 UG, QD
  9. CORTIFOAM [Concomitant]
     Dosage: UNK UKN, UNK (PRN)
  10. TIMOLOL MALEATE [Concomitant]
     Dosage: 1 UKN (DROP), QD
  11. AMLODIPINE [Concomitant]
     Dosage: 5 MG, QD
  12. GABAPENTIN [Concomitant]
     Dosage: 200 MG, UNK
  13. ZOLEDRONOC ACID [Suspect]
     Indication: OSTEOPOROSIS
     Dosage: UNK UKN, UNK
     Route: 042
     Dates: start: 20091217
  14. ZOLEDRONOC ACID [Suspect]
     Dosage: UNK UKN, UNK
     Route: 042
     Dates: start: 20101216
  15. ATACAND [Concomitant]
     Dosage: 16 MG, QD
  16. ACEBUTOLOL [Concomitant]
     Dosage: 200 MG, BID
  17. DICETEL [Concomitant]
     Dosage: 50 MG, TID
  18. PROCTOL [Concomitant]
     Dosage: UNK UKN, UNK (PRN)
  19. FERROUS GLUCONATE [Concomitant]
     Dosage: 300 MG, QD
  20. FUROSEMIDE [Concomitant]
     Dosage: 40 MG, QD

REACTIONS (5)
  - NEUROPATHIC ARTHROPATHY [None]
  - FOOT FRACTURE [None]
  - FALL [None]
  - FIBULA FRACTURE [None]
  - LIGAMENT SPRAIN [None]
